FAERS Safety Report 8476296-6 (Version None)
Quarter: 2012Q2

REPORT INFORMATION
  Report Type: 
  Country: None (occurrence: None)
  Receive Date: 20120628
  Receipt Date: 20120619
  Transmission Date: 20120825
  Serious: Yes (Hospitalization)
  Sender: FDA-Public Use
  Company Number: US-SANOFI-AVENTIS-2012SA044365

PATIENT
  Age: 86 Year
  Sex: Female

DRUGS (4)
  1. HYDROCHLOROTHIAZIDE [Concomitant]
  2. ALLEGRA [Suspect]
     Route: 048
     Dates: start: 20120501, end: 20120601
  3. COREG [Suspect]
  4. TRAZODONE HCL [Concomitant]

REACTIONS (2)
  - FALL [None]
  - INSOMNIA [None]
